FAERS Safety Report 8373568-0 (Version None)
Quarter: 2012Q2

REPORT INFORMATION
  Report Type: 
  Country: None (occurrence: None)
  Receive Date: 20120517
  Receipt Date: 20091125
  Transmission Date: 20120825
  Serious: Yes (Hospitalization)
  Sender: FDA-Public Use
  Company Number: PL-007907

PATIENT
  Age: 70 Year
  Sex: Female
  Weight: 87 kg

DRUGS (3)
  1. RUTINOSCORBIN (RUTOSIDE, ASCORBIC ACID)(UNKNOWN) [Concomitant]
  2. SPIRONOLACTONE [Concomitant]
  3. CHLORAMBUCIL (CHLORAMBUCIL) (UNKNOWN) [Suspect]
     Indication: CHRONIC LYMPHOCYTIC LEUKAEMIA
     Dosage: (10 MG/M2)

REACTIONS (2)
  - ASTHENIA [None]
  - PYREXIA [None]
